FAERS Safety Report 6973304-6 (Version None)
Quarter: 2010Q3

REPORT INFORMATION
  Report Type: 
  Country: None (occurrence: None)
  Receive Date: 20100909
  Receipt Date: 20100831
  Transmission Date: 20110219
  Serious: Yes (Life-Threatening)
  Sender: FDA-Public Use
  Company Number: FR-BAXTER-2010BH014344

PATIENT
  Age: 57 Year
  Sex: Female

DRUGS (5)
  1. HOLOXAN BAXTER [Suspect]
     Indication: LEIOMYOSARCOMA
     Route: 042
     Dates: start: 10100518, end: 20100518
  2. ETOPOSIDE [Suspect]
     Indication: LEIOMYOSARCOMA
     Route: 042
     Dates: start: 20100518, end: 20100518
  3. UROMITEXAN BAXTER [Suspect]
     Indication: PRODUCT USED FOR UNKNOWN INDICATION
     Route: 042
     Dates: start: 20100518, end: 20100518
  4. METHYLPREDNISOLONE [Suspect]
     Indication: PRODUCT USED FOR UNKNOWN INDICATION
     Route: 042
     Dates: start: 20100518, end: 20100518
  5. ONDANSETRON HCL [Suspect]
     Indication: PRODUCT USED FOR UNKNOWN INDICATION
     Route: 042
     Dates: start: 20100518, end: 20100518

REACTIONS (1)
  - ENCEPHALOPATHY [None]
